FAERS Safety Report 6885398-7 (Version None)
Quarter: 2010Q3

REPORT INFORMATION
  Report Type: 
  Country: None (occurrence: None)
  Receive Date: 20100729
  Receipt Date: 20090313
  Transmission Date: 20110219
  Serious: No
  Sender: FDA-Public Use
  Company Number: US-PFIZER INC-2009183085

PATIENT
  Sex: Female

DRUGS (4)
  1. CELEBREX [Suspect]
     Indication: TENDONITIS
     Dosage: 300 MG/DAY
     Dates: start: 20010101
  2. CELEBREX [Interacting]
     Indication: PAIN
  3. GENERAL NUTRIENTS [Interacting]
  4. DRUG, UNSPECIFIED [Concomitant]

REACTIONS (2)
  - FOOD INTERACTION [None]
  - GLOSSODYNIA [None]
